FAERS Safety Report 5888678-7 (Version None)
Quarter: 2008Q3

REPORT INFORMATION
  Report Type: 
  Country: None (occurrence: None)
  Receive Date: 20080916
  Receipt Date: 20080903
  Transmission Date: 20090109
  Serious: Yes (Other)
  Sender: FDA-Public Use
  Company Number: 2008BI016748

PATIENT
  Age: 51 Year
  Sex: Female

DRUGS (5)
  1. TYSABRI [Suspect]
     Indication: MULTIPLE SCLEROSIS
     Dosage: 300 MG; QM; IV
     Route: 042
     Dates: start: 20070502, end: 20080604
  2. STEROIDS (CON.) [Concomitant]
  3. COPAXONE (PREV.) [Concomitant]
  4. BETAFERON (PREV.) [Concomitant]
  5. AZATHIOPRINE (PREV.) [Concomitant]

REACTIONS (2)
  - EOSINOPHILIA [None]
  - LEUKOCYTOSIS [None]
